FAERS Safety Report 4697162-8 (Version None)
Quarter: 2005Q2

REPORT INFORMATION
  Report Type: 
  Country: None (occurrence: None)
  Receive Date: 20050622
  Receipt Date: 20050607
  Transmission Date: 20051028
  Serious: Yes (Other)
  Sender: FDA-Public Use
  Company Number: PHEH2005US06459

PATIENT
  Age: 52 Year
  Sex: Female

DRUGS (8)
  1. ZOMETA [Suspect]
     Indication: METASTASES TO BONE
     Dosage: 4 MG EVERY MONTH
     Dates: start: 20021101, end: 20031201
  2. AREDIA [Suspect]
     Indication: METASTASES TO BONE
     Dosage: 90 MG EVERY MONTH
     Dates: start: 20040102, end: 20050319
  3. DIPHENHYDRAMINE HCL [Concomitant]
     Dosage: 25 MG, UNK
     Route: 042
  4. HERCEPTIN [Concomitant]
     Indication: BREAST CANCER METASTATIC
     Dosage: 100 MG, QW
     Route: 042
  5. KYTRIL [Concomitant]
     Indication: BREAST CANCER METASTATIC
     Dosage: 1 MG, UNK
     Route: 042
  6. NAVELBINE [Concomitant]
     Indication: BREAST CANCER
     Dosage: 40 MG, UNK
     Route: 042
  7. ARANESP [Concomitant]
     Indication: BREAST CANCER METASTATIC
     Dosage: 200 MG, UNK
     Route: 042
     Dates: start: 20050325
  8. PACLITAXEL [Concomitant]
     Indication: BREAST CANCER METASTATIC
     Dosage: 180 MG, UNK
     Route: 042

REACTIONS (11)
  - ASEPTIC NECROSIS BONE [None]
  - BONE DISORDER [None]
  - CATHETER RELATED COMPLICATION [None]
  - GINGIVAL PAIN [None]
  - GINGIVAL SWELLING [None]
  - GINGIVITIS [None]
  - HEPATIC LESION [None]
  - MALIGNANT NEOPLASM PROGRESSION [None]
  - OSTEOMYELITIS [None]
  - THROMBOSIS [None]
  - TOOTH EXTRACTION [None]
